FAERS Safety Report 6893967-3 (Version None)
Quarter: 2010Q3

REPORT INFORMATION
  Report Type: 
  Country: None (occurrence: None)
  Receive Date: 20100802
  Receipt Date: 20100722
  Transmission Date: 20110219
  Serious: No
  Sender: FDA-Public Use
  Company Number: US-BIOGENIDEC-2010BI025460

PATIENT
  Age: 34 Year
  Sex: Female

DRUGS (1)
  1. AVONEX [Suspect]
     Indication: MULTIPLE SCLEROSIS
     Route: 030
     Dates: start: 20100404

REACTIONS (6)
  - ABNORMAL FAECES [None]
  - FATIGUE [None]
  - NAUSEA [None]
  - ORAL CANDIDIASIS [None]
  - RETCHING [None]
  - WHITE BLOOD CELL COUNT DECREASED [None]
